FAERS Safety Report 4950510-3 (Version None)
Quarter: 2006Q1

REPORT INFORMATION
  Report Type: 
  Country: None (occurrence: None)
  Receive Date: 20060322
  Receipt Date: 20060310
  Transmission Date: 20060701
  Serious: Yes (Disabling)
  Sender: FDA-Public Use
  Company Number: FR-GLAXOSMITHKLINE-B0415987A

PATIENT
  Age: 18 Month
  Sex: Male
  Weight: 11 kg

DRUGS (4)
  1. RETROVIR [Suspect]
     Indication: ANTIVIRAL PROPHYLAXIS
     Route: 048
     Dates: start: 20040518, end: 20040702
  2. RETROVIR [Suspect]
     Indication: DRUG EXPOSURE DURING PREGNANCY
     Dates: start: 20040518, end: 20040518
  3. COMBIVIR [Suspect]
     Indication: DRUG EXPOSURE DURING PREGNANCY
     Dates: end: 20040518
  4. VIRACEPT [Suspect]
     Indication: DRUG EXPOSURE DURING PREGNANCY
     Dates: end: 20040518

REACTIONS (6)
  - CONVULSION [None]
  - DRUG EXPOSURE DURING PREGNANCY [None]
  - EPILEPSY [None]
  - NUCLEAR MAGNETIC RESONANCE IMAGING ABNORMAL [None]
  - PARTIAL SEIZURES WITH SECONDARY GENERALISATION [None]
  - PSYCHOMOTOR RETARDATION [None]
